FAERS Safety Report 5796645-7 (Version None)
Quarter: 2008Q2

REPORT INFORMATION
  Report Type: 
  Country: None (occurrence: None)
  Receive Date: 20080630
  Receipt Date: 20080630
  Transmission Date: 20081010
  Serious: Yes (Hospitalization)
  Sender: FDA-Public Use
  Company Number: None

PATIENT
  Sex: Female
  Weight: 105.4 kg

DRUGS (5)
  1. CISPLATIN [Suspect]
     Dosage: 100 MG
  2. DOXORUBICIN HYDROCHLORIDE [Suspect]
     Dosage: 90 MG
  3. G-CSF (FILGRASTIM, AMGEN) [Suspect]
     Dosage: 6 MG
  4. TAXOL [Suspect]
     Dosage: 320 MG
  5. PAXIL [Concomitant]

REACTIONS (10)
  - BACTERIAL INFECTION [None]
  - CATHETER SITE INFECTION [None]
  - CATHETER SITE PAIN [None]
  - CATHETER SITE RELATED REACTION [None]
  - DECREASED APPETITE [None]
  - ERYTHEMA [None]
  - INDURATION [None]
  - MALAISE [None]
  - PURULENCE [None]
  - RESPIRATORY RATE INCREASED [None]
